FAERS Safety Report 17901008 (Version 1)
Quarter: 2020Q2

REPORT INFORMATION
  Report Type: Spontaneous
  Country: HK (occurrence: HK)
  Receive Date: 20200616
  Receipt Date: 20200616
  Transmission Date: 20200714
  Serious: Yes (Life-Threatening, Hospitalization)
  Sender: FDA-Public Use
  Company Number: HK-AMNEAL PHARMACEUTICALS-2020-AMRX-01668

PATIENT
  Age: 6 Month
  Sex: Male

DRUGS (3)
  1. FLECAINIDE ACETATE. [Suspect]
     Active Substance: FLECAINIDE ACETATE
     Indication: ATRIAL TACHYCARDIA
     Dosage: UNK
     Route: 048
  2. AMIODARONE [Suspect]
     Active Substance: AMIODARONE
     Indication: ATRIAL TACHYCARDIA
     Dosage: UNK
     Route: 048
  3. NADOLOL. [Suspect]
     Active Substance: NADOLOL
     Indication: ATRIAL TACHYCARDIA
     Dosage: UNK
     Route: 048

REACTIONS (4)
  - Hypotension [Recovering/Resolving]
  - Toxicity to various agents [Recovering/Resolving]
  - Metabolic acidosis [Recovering/Resolving]
  - Bradycardia [Recovering/Resolving]
